FAERS Safety Report 9105841 (Version 1)
Quarter: 2013Q1

REPORT INFORMATION
  Report Type: Spontaneous
  Country: US (occurrence: US)
  Receive Date: 20130220
  Receipt Date: 20130220
  Transmission Date: 20140127
  Serious: Yes (Death, Hospitalization)
  Sender: FDA-Public Use
  Company Number: PHEH2013US004050

PATIENT
  Age: 87 Year
  Sex: Male

DRUGS (1)
  1. EXJADE [Suspect]
     Indication: MYELODYSPLASTIC SYNDROME
     Dosage: 500 MG, 2 TABLETS DAILY
     Route: 048
     Dates: start: 20130104

REACTIONS (5)
  - Respiratory failure [Fatal]
  - Nephrolithiasis [Unknown]
  - Flank pain [Unknown]
  - Vomiting [Unknown]
  - Renal failure [Unknown]
